FAERS Safety Report 15103650 (Version 2)
Quarter: 2018Q3

REPORT INFORMATION
  Report Type: Spontaneous
  Country: US (occurrence: US)
  Receive Date: 20180703
  Receipt Date: 20180806
  Transmission Date: 20181010
  Serious: Yes (Disabling, Other)
  Sender: FDA-Public Use
  Company Number: US-JNJFOC-20180639950

PATIENT
  Age: 72 Year
  Sex: Male

DRUGS (1)
  1. INVOKANA [Suspect]
     Active Substance: CANAGLIFLOZIN
     Indication: TYPE 2 DIABETES MELLITUS
     Route: 048
     Dates: start: 20151005

REACTIONS (4)
  - Diabetic ulcer [Unknown]
  - Gangrene [Unknown]
  - Leg amputation [Unknown]
  - Foot operation [Unknown]

NARRATIVE: CASE EVENT DATE: 20160725
